FAERS Safety Report 5467317-3 (Version None)
Quarter: 2007Q3

REPORT INFORMATION
  Report Type: 
  Country: None (occurrence: None)
  Receive Date: 20070925
  Receipt Date: 20070913
  Transmission Date: 20080115
  Serious: Yes (Other)
  Sender: FDA-Public Use
  Company Number: SI-PFIZER INC-2007066098

PATIENT
  Age: 46 Year
  Sex: Female
  Weight: 57 kg

DRUGS (3)
  1. XANAX [Suspect]
     Indication: ANXIETY DISORDER
     Route: 048
  2. SEROQUEL [Concomitant]
     Dosage: DAILY DOSE:100MG-FREQ:25MG IN MORNING, 75MG IN EVENING
     Route: 048
  3. COAXIL [Concomitant]
     Route: 048

REACTIONS (2)
  - INTENTIONAL OVERDOSE [None]
  - NO ADVERSE REACTION [None]
